FAERS Safety Report 5805587-X (Version None)
Quarter: 2008Q3

REPORT INFORMATION
  Report Type: 
  Country: None (occurrence: None)
  Receive Date: 20080708
  Receipt Date: 20080708
  Transmission Date: 20090109
  Serious: No
  Sender: FDA-Public Use
  Company Number: None

PATIENT
  Sex: Female
  Weight: 58.9676 kg

DRUGS (1)
  1. AMOXICILLIN [Suspect]
     Indication: SURGERY
     Dosage: 1 CAPSULES 3 TIMES DAILY, 6 DAYS
     Dates: start: 20080627, end: 20080704

REACTIONS (3)
  - PRURITUS [None]
  - PYREXIA [None]
  - RASH GENERALISED [None]
